FAERS Safety Report 4313945-8 (Version None)
Quarter: 2004Q1

REPORT INFORMATION
  Report Type: 
  Country: None (occurrence: None)
  Receive Date: 20040309
  Receipt Date: 20040213
  Transmission Date: 20041129
  Serious: Yes (Hospitalization)
  Sender: FDA-Public Use
  Company Number: 200410460EU

PATIENT
  Age: 64 Year
  Sex: Male

DRUGS (6)
  1. DOCETAXEL [Suspect]
     Indication: OESOPHAGEAL CARCINOMA
     Route: 042
     Dates: start: 20040105, end: 20040202
  2. CISPLATIN [Suspect]
     Indication: OESOPHAGEAL CARCINOMA
     Route: 042
     Dates: start: 20040105, end: 20040202
  3. RADIOTHERAPY [Suspect]
     Indication: OESOPHAGEAL CARCINOMA
     Dates: start: 20040105, end: 20040210
  4. NEXIUM [Concomitant]
     Route: 048
     Dates: start: 20031128, end: 20040226
  5. CONCOR PLUS [Concomitant]
     Route: 048
     Dates: start: 20010101, end: 20040226
  6. TRAMADOL HCL [Concomitant]
     Route: 048
     Dates: start: 20040210, end: 20040226

REACTIONS (2)
  - OESOPHAGITIS [None]
  - RADIATION INJURY [None]
